FAERS Safety Report 9775190 (Version 1)
Quarter: 2013Q4

REPORT INFORMATION
  Report Type: Spontaneous
  Country: US (occurrence: None)
  Receive Date: 20131218
  Receipt Date: 20131218
  Transmission Date: 20140711
  Serious: Yes (Hospitalization)
  Sender: FDA-Public Use
  Company Number: FP07286

PATIENT
  Sex: Male

DRUGS (1)
  1. RELISTOR [Suspect]
     Route: 058
     Dates: start: 2013

REACTIONS (1)
  - Renal failure [None]
